FAERS Safety Report 21704261 (Version 2)
Quarter: 2023Q1

REPORT INFORMATION
  Report Type: Other
  Country: PL (occurrence: None)
  Receive Date: 20221209
  Receipt Date: 20230220
  Transmission Date: 20230418
  Serious: Yes (Death)
  Sender: FDA-Public Use
  Company Number: PL-ROCHE-3232981

PATIENT

DRUGS (6)
  1. RITUXIMAB [Suspect]
     Active Substance: RITUXIMAB
     Indication: Central nervous system lymphoma
     Dosage: FOR 6 DOSES
     Route: 041
  2. METHOTREXATE [Suspect]
     Active Substance: METHOTREXATE
     Indication: Central nervous system lymphoma
     Dosage: 3.5 G/M2 (2 H INFUSION) DAY 2
     Route: 042
  3. IFOSFAMIDE [Suspect]
     Active Substance: IFOSFAMIDE
     Indication: Central nervous system lymphoma
     Dosage: SIX CYCLES,EVERY TWO WEEKS (DAYS 4-6)
     Route: 065
  4. VINCRISTINE [Suspect]
     Active Substance: VINCRISTINE
     Indication: Central nervous system lymphoma
     Dosage: (MAX 2 MG)
     Route: 065
  5. CYTARABINE [Suspect]
     Active Substance: CYTARABINE
     Indication: Central nervous system lymphoma
     Dosage: DAY 1-2, CYTARABINE 2.0 G/M2 EVERY 12 H (TOTAL FOUR DOSES) WERE GIVEN AFTER R-MIV
     Route: 065
  6. THIOTEPA [Suspect]
     Active Substance: THIOTEPA
     Indication: Central nervous system lymphoma
     Dosage: ADDED ON DAY 3
     Route: 065

REACTIONS (3)
  - COVID-19 [Fatal]
  - Cytomegalovirus infection reactivation [Fatal]
  - Pneumonia cytomegaloviral [Fatal]
